FAERS Safety Report 8720369 (Version 3)
Quarter: 2013Q1

REPORT INFORMATION
  Report Type: Spontaneous
  Country: JP (occurrence: JP)
  Receive Date: 20120813
  Receipt Date: 20130111
  Transmission Date: 20140127
  Serious: Yes (Hospitalization)
  Sender: FDA-Public Use
  Company Number: JP-ACTELION-A-CH2012-69740

PATIENT
  Age: 76 Year
  Sex: Female
  Weight: 44.2 kg

DRUGS (9)
  1. TRACLEER [Suspect]
     Indication: PULMONARY ARTERIAL HYPERTENSION
     Dosage: 62.5 MG, BID
     Route: 048
     Dates: start: 20120706, end: 20120717
  2. FUROSEMIDE [Concomitant]
     Route: 042
  3. WARFARIN POTASSIUM [Concomitant]
  4. RABEPRAZOLE SODIUM [Concomitant]
  5. MEXILETINE HYDROCHLORIDE [Concomitant]
  6. SARPOGRELATE HYDROCHLORIDE [Concomitant]
  7. SPIRONOLACTONE [Concomitant]
  8. TRICHLORMETHIAZIDE [Concomitant]
  9. MAGNESIUM OXIDE [Concomitant]

REACTIONS (5)
  - Cardiac failure [Recovering/Resolving]
  - Weight increased [Recovering/Resolving]
  - Malaise [Recovering/Resolving]
  - Chest discomfort [Recovering/Resolving]
  - Oedema peripheral [Recovering/Resolving]
